FAERS Safety Report 9313644 (Version 1)
Quarter: 2013Q2

REPORT INFORMATION
  Report Type: Spontaneous
  Country: US (occurrence: US)
  Receive Date: 20130529
  Receipt Date: 20130529
  Transmission Date: 20140414
  Serious: No
  Sender: FDA-Public Use
  Company Number: US-009507513-1305USA013312

PATIENT
  Sex: Female

DRUGS (5)
  1. REBETOL [Suspect]
     Indication: HEPATITIS C
     Dosage: UNK
     Route: 048
     Dates: start: 20100101, end: 20100601
  2. REBETOL [Suspect]
     Dosage: UNK
     Route: 048
     Dates: start: 2012, end: 2012
  3. PEGASYS [Suspect]
     Indication: HEPATITIS C
     Dosage: UNK
     Dates: start: 20100101, end: 20100601
  4. PEGASYS [Suspect]
     Dosage: UNK
     Dates: start: 2012, end: 2012
  5. THERAPY UNSPECIFIED [Suspect]
     Dosage: UNK
     Dates: start: 2012, end: 2012

REACTIONS (6)
  - Irritability [Unknown]
  - Anaemia [Unknown]
  - Haemoglobin decreased [Unknown]
  - Therapeutic response decreased [Unknown]
  - Drug ineffective [Unknown]
  - Therapeutic response decreased [Unknown]
